FAERS Safety Report 21715149 (Version 1)
Quarter: 2022Q4

REPORT INFORMATION
  Report Type: Spontaneous
  Country: FR (occurrence: FR)
  Receive Date: 20221212
  Receipt Date: 20221212
  Transmission Date: 20230113
  Serious: Yes (Other)
  Sender: FDA-Public Use
  Company Number: None

PATIENT
  Age: 66 Year
  Sex: Male

DRUGS (1)
  1. GEMZAR [Suspect]
     Active Substance: GEMCITABINE HYDROCHLORIDE
     Indication: Neoplasm malignant
     Dosage: UNK UNK, UNKNOWN
     Route: 042
     Dates: start: 2022

REACTIONS (1)
  - Eosinophilic pustulosis [Recovering/Resolving]

NARRATIVE: CASE EVENT DATE: 20221101
